FAERS Safety Report 9306205 (Version 2)
Quarter: 2013Q2

REPORT INFORMATION
  Report Type: Spontaneous
  Country: FR (occurrence: FR)
  Receive Date: 20130523
  Receipt Date: 20130524
  Transmission Date: 20140414
  Serious: Yes (Hospitalization)
  Sender: FDA-Public Use
  Company Number: FR-GLAXOSMITHKLINE-B0892343A

PATIENT
  Age: 84 Year
  Sex: Female

DRUGS (21)
  1. AUGMENTIN [Suspect]
     Indication: PREMEDICATION
     Route: 065
     Dates: start: 201303, end: 20130307
  2. PARACETAMOL [Suspect]
     Indication: PAIN
     Route: 048
     Dates: start: 20130224, end: 20130307
  3. RANIPLEX [Suspect]
     Indication: PREMEDICATION
     Route: 048
     Dates: start: 20130305, end: 20130305
  4. CELEBREX [Suspect]
     Indication: PAIN
     Dosage: 200MG TWICE PER DAY
     Route: 048
     Dates: start: 20130227, end: 20130307
  5. OMEPRAZOLE [Suspect]
     Indication: PRODUCT USED FOR UNKNOWN INDICATION
     Dosage: 20MG PER DAY
     Route: 048
     Dates: start: 20130227, end: 20130307
  6. SEVORANE [Suspect]
     Indication: ANAESTHESIA
     Route: 065
     Dates: start: 20130305, end: 20130305
  7. SUFENTANIL [Suspect]
     Indication: ANAESTHESIA
     Route: 065
     Dates: start: 20130305, end: 20130305
  8. DIPRIVAN [Suspect]
     Indication: ANAESTHESIA
     Route: 065
     Dates: start: 20130305, end: 20130305
  9. KETAMINE [Suspect]
     Indication: ANAESTHESIA
     Route: 065
     Dates: start: 20130305, end: 20130305
  10. CELESTENE [Suspect]
     Indication: ANAESTHESIA
     Route: 065
     Dates: start: 20130305, end: 20130305
  11. EPHEDRINE [Suspect]
     Indication: ANAESTHESIA
     Route: 065
     Dates: start: 20130305, end: 20130305
  12. NEOSYNEPHRINE [Suspect]
     Indication: ANAESTHESIA
     Route: 065
     Dates: start: 20130305, end: 20130305
  13. DROLEPTAN [Suspect]
     Indication: ANAESTHESIA
     Route: 065
     Dates: start: 20130305, end: 20130305
  14. VANCOMYCINE [Suspect]
     Indication: PRODUCT USED FOR UNKNOWN INDICATION
     Route: 065
     Dates: start: 20130305, end: 20130305
  15. MORPHINE [Suspect]
     Indication: PRODUCT USED FOR UNKNOWN INDICATION
     Route: 065
     Dates: start: 20130305, end: 20130305
  16. CATAPRESSAN [Suspect]
     Indication: PRODUCT USED FOR UNKNOWN INDICATION
     Route: 065
     Dates: start: 20130305, end: 20130305
  17. BRICANYL [Concomitant]
     Indication: PREMEDICATION
     Route: 065
  18. ATROVENT [Concomitant]
     Indication: PREMEDICATION
     Route: 065
  19. PYOSTACINE [Concomitant]
     Indication: PREMEDICATION
     Route: 065
  20. ACUPAN [Concomitant]
     Route: 065
     Dates: start: 20130305
  21. APROVEL [Concomitant]
     Route: 065

REACTIONS (2)
  - Hepatocellular injury [Recovering/Resolving]
  - Cholestasis [Recovering/Resolving]
